FAERS Safety Report 21611396 (Version 2)
Quarter: 2023Q1

REPORT INFORMATION
  Report Type: Report from Study
  Country: PT (occurrence: PT)
  Receive Date: 20221117
  Receipt Date: 20230122
  Transmission Date: 20230418
  Serious: Yes (Other)
  Sender: FDA-Public Use
  Company Number: PT-ABBVIE-4202343

PATIENT
  Age: 87 Year
  Sex: Female

DRUGS (11)
  1. CARBIDOPA\LEVODOPA [Suspect]
     Active Substance: CARBIDOPA\LEVODOPA
     Indication: Parkinson^s disease
     Dosage: 20 MG + 5 MG (VIA NJ)?MORN:7CC;MAINT:2.6CC/H;EXTRA:1CC?DISCONTINUED IN NOV 2022
     Route: 050
     Dates: start: 20221109, end: 202211
  2. CARBIDOPA\LEVODOPA [Suspect]
     Active Substance: CARBIDOPA\LEVODOPA
     Dosage: 20 MG + 5 MG (VIA NJ)?MORN:4CC;MAINT:2.6CC/H;EXTRA:1CC
     Route: 050
     Dates: start: 202211, end: 20221113
  3. CARBIDOPA\LEVODOPA [Suspect]
     Active Substance: CARBIDOPA\LEVODOPA
     Route: 050
  4. CARBIDOPA\LEVODOPA [Suspect]
     Active Substance: CARBIDOPA\LEVODOPA
     Dosage: 20 MG + 5 MG (VIA NJ)?MORN:7CC;MAINT:2.6CC/H;EXTRA:1CC
     Route: 050
     Dates: start: 20221114
  5. GABAPENTIN [Concomitant]
     Active Substance: GABAPENTIN
     Indication: Product used for unknown indication
     Dosage: 1 TABLET, AT BEDTIME, STARTED BEFORE DUODOPA?STRENGTH- 100 MILLIGRAM
     Route: 048
  6. LACIDIPINE [Concomitant]
     Active Substance: LACIDIPINE
     Indication: Product used for unknown indication
     Dosage: 1 TABLET, AT DINNER, STARTED BEFORE DUODOPA?STRENGTH- 4 MILLIGRAM
     Route: 048
  7. DULOXETINE [Concomitant]
     Active Substance: DULOXETINE
     Indication: Product used for unknown indication
     Dosage: 1 TABLET, AT BREAKFAST, BEFORE DUODOPA?STRENGTH- 30 MILLIGRAM
     Route: 048
  8. LOSARTAN [Concomitant]
     Active Substance: LOSARTAN
     Indication: Product used for unknown indication
     Dosage: 1 TABLET, AT BREAKFAST, STARTED BEFORE DUODOPA?STRENGTH- 50 MILLIGRAM
     Route: 048
  9. OMEPRAZOLE [Concomitant]
     Active Substance: OMEPRAZOLE
     Indication: Product used for unknown indication
     Dosage: 1 TABLET, IN FASTING, STARTED BEFORE DUODOPA?STRENGTH- 20 MILLIGRAM
     Route: 048
  10. CLOPIDOGREL [Concomitant]
     Active Substance: CLOPIDOGREL BISULFATE
     Indication: Product used for unknown indication
     Dosage: 1 TABLET, AT LUNCH, STARTED BEFORE DUODOPA?STRENGTH- 75 MILLIGRAM
     Route: 048
  11. DONEPEZIL [Concomitant]
     Active Substance: DONEPEZIL
     Indication: Product used for unknown indication
     Dosage: 1 TABLET, AT BEDTIME, STARTED BEFORE DUODOPA?STRENGTH- 5 MILLIGRAM
     Route: 048

REACTIONS (2)
  - Chest pain [Recovered/Resolved]
  - Hypertension [Recovered/Resolved]

NARRATIVE: CASE EVENT DATE: 20221113
